FAERS Safety Report 4590732-7 (Version None)
Quarter: 2005Q1

REPORT INFORMATION
  Report Type: 
  Country: None (occurrence: None)
  Receive Date: 20050224
  Receipt Date: 20041123
  Transmission Date: 20050727
  Serious: Yes (Life-Threatening, Disabling, Other)
  Sender: FDA-Public Use
  Company Number: US-MERCK-0411USA03862

PATIENT
  Age: 76 Year
  Sex: Male
  Weight: 115 kg

DRUGS (1)
  1. VIOXX [Suspect]
     Indication: BACK PAIN
     Route: 048
     Dates: start: 20030101, end: 20040101

REACTIONS (6)
  - ASTHENIA [None]
  - CEREBROVASCULAR ACCIDENT [None]
  - HYPERHIDROSIS [None]
  - HYPOTENSION [None]
  - PALLOR [None]
  - TRANSIENT ISCHAEMIC ATTACK [None]
